FAERS Safety Report 14815011 (Version 8)
Quarter: 2021Q1

REPORT INFORMATION
  Report Type: Spontaneous
  Country: US (occurrence: US)
  Receive Date: 20180426
  Receipt Date: 20210319
  Transmission Date: 20210419
  Serious: Yes (Death, Other)
  Sender: FDA-Public Use
  Company Number: US-PFIZER INC-2018170125

PATIENT
  Age: 79 Year
  Sex: Female

DRUGS (29)
  1. PROTONIX [Suspect]
     Active Substance: PANTOPRAZOLE SODIUM
     Dosage: UNK
     Dates: start: 20040811, end: 20040924
  2. ACIPHEX [Suspect]
     Active Substance: RABEPRAZOLE SODIUM
     Indication: GASTROOESOPHAGEAL REFLUX DISEASE
     Dosage: UNK
     Dates: start: 20040811, end: 20040924
  3. SYNTHROID [Concomitant]
     Active Substance: LEVOTHYROXINE SODIUM
     Dosage: UNK
  4. ULTRAM [Concomitant]
     Active Substance: TRAMADOL HYDROCHLORIDE
     Dosage: UNK
  5. PREVACID [Suspect]
     Active Substance: LANSOPRAZOLE
     Dosage: UNK
     Route: 048
  6. OMEPRAZOLE. [Suspect]
     Active Substance: OMEPRAZOLE
     Indication: GASTROOESOPHAGEAL REFLUX DISEASE
     Dosage: 20 MG, 1X/DAY
     Dates: start: 20001017, end: 20010814
  7. HYDROCHLOROTHIAZIDE. [Concomitant]
     Active Substance: HYDROCHLOROTHIAZIDE
     Indication: HYPERTENSION
     Dosage: UNK
     Dates: start: 19980317, end: 200308
  8. NEXIUM 24HR [Suspect]
     Active Substance: ESOMEPRAZOLE MAGNESIUM
     Dosage: UNK
     Route: 048
  9. PRILOSEC [Suspect]
     Active Substance: OMEPRAZOLE MAGNESIUM
     Dosage: UNK
     Route: 048
  10. NIFEREX [Concomitant]
     Dosage: UNK
  11. NAPROXEN. [Concomitant]
     Active Substance: NAPROXEN
     Indication: PAIN
  12. PANTOPRAZOLE [Suspect]
     Active Substance: PANTOPRAZOLE
     Indication: GASTROOESOPHAGEAL REFLUX DISEASE
     Dosage: 40 MG, 1X/DAY
     Dates: start: 20031204, end: 20040103
  13. LANOXIN [Concomitant]
     Active Substance: DIGOXIN
     Dosage: UNK
  14. SIMVASTATIN. [Concomitant]
     Active Substance: SIMVASTATIN
     Indication: BLOOD CHOLESTEROL INCREASED
     Dosage: UNK
     Dates: start: 20020603, end: 200408
  15. NAPROXEN. [Concomitant]
     Active Substance: NAPROXEN
     Indication: PYREXIA
     Dosage: UNK
     Dates: start: 20011108, end: 200112
  16. ASPIRIN. [Concomitant]
     Active Substance: ASPIRIN
     Indication: ANTICOAGULANT THERAPY
     Dosage: UNK
     Dates: start: 199803, end: 200308
  17. ROLAIDS [Concomitant]
     Active Substance: CALCIUM CARBONATE\MAGNESIUM HYDROXIDE
     Indication: ANTACID THERAPY
     Dosage: UNK
     Dates: start: 1998, end: 2000
  18. PROTONIX [Suspect]
     Active Substance: PANTOPRAZOLE SODIUM
     Indication: GASTROOESOPHAGEAL REFLUX DISEASE
     Dosage: 40 MG, 1X/DAY
     Dates: start: 20040811
  19. PREVACID 24 HR [Suspect]
     Active Substance: LANSOPRAZOLE
     Dosage: UNK
     Route: 048
  20. RABEPRAZOLE [Suspect]
     Active Substance: RABEPRAZOLE
     Indication: GASTROOESOPHAGEAL REFLUX DISEASE
     Dosage: 20 MG, 1X/DAY
     Dates: start: 20021009, end: 20040521
  21. LEVOFLOXACIN. [Concomitant]
     Active Substance: LEVOFLOXACIN
     Indication: INFECTION
     Dosage: UNK
     Dates: start: 20031204, end: 200312
  22. TRAMADOL. [Concomitant]
     Active Substance: TRAMADOL
     Indication: PAIN
     Dosage: UNK
     Dates: start: 20040810, end: 200409
  23. CERIVASTATIN [Concomitant]
     Active Substance: CERIVASTATIN
     Indication: BLOOD CHOLESTEROL INCREASED
     Dosage: UNK
     Dates: start: 20000919, end: 200109
  24. TUMS [Concomitant]
     Active Substance: CALCIUM CARBONATE
     Indication: ANTACID THERAPY
     Dosage: UNK
     Dates: start: 1998, end: 2000
  25. DEXILANT [Suspect]
     Active Substance: DEXLANSOPRAZOLE
     Dosage: UNK
     Route: 048
  26. PRAVACHOL [Concomitant]
     Active Substance: PRAVASTATIN SODIUM
     Dosage: UNK
  27. FUROSEMIDE. [Concomitant]
     Active Substance: FUROSEMIDE
     Indication: FLUID RETENTION
     Dosage: UNK
     Dates: start: 20031030, end: 200409
  28. NEXIUM [Suspect]
     Active Substance: ESOMEPRAZOLE MAGNESIUM
     Dosage: UNK
     Route: 048
  29. PRILOSEC OTC [Suspect]
     Active Substance: OMEPRAZOLE MAGNESIUM
     Dosage: UNK
     Route: 048

REACTIONS (5)
  - Acute kidney injury [Fatal]
  - Tubulointerstitial nephritis [Fatal]
  - Renal failure [Fatal]
  - End stage renal disease [Fatal]
  - Chronic kidney disease [Fatal]

NARRATIVE: CASE EVENT DATE: 20040811
